FAERS Safety Report 9863124 (Version 3)
Quarter: 2014Q2

REPORT INFORMATION
  Report Type: Spontaneous
  Country: JP (occurrence: JP)
  Receive Date: 20140203
  Receipt Date: 20140414
  Transmission Date: 20141212
  Serious: Yes (Death, Other)
  Sender: FDA-Public Use
  Company Number: JP-JNJFOC-20140115670

PATIENT
  Age: 57 Year
  Sex: Male

DRUGS (13)
  1. RISPERDAL CONSTA [Suspect]
     Indication: SCHIZOPHRENIA
     Route: 030
     Dates: end: 20131024
  2. RISPERDAL CONSTA [Suspect]
     Indication: SCHIZOPHRENIA
     Route: 030
     Dates: start: 20131205
  3. RISPERDAL CONSTA [Suspect]
     Indication: SCHIZOPHRENIA
     Route: 030
     Dates: start: 20131121, end: 20131121
  4. PALIPERIDONE PALMITATE [Suspect]
     Indication: SCHIZOPHRENIA
     Route: 030
     Dates: start: 20140106, end: 20140106
  5. PALIPERIDONE PALMITATE [Suspect]
     Indication: SCHIZOPHRENIA
     Route: 030
     Dates: start: 20131205, end: 20131205
  6. LODOPIN [Concomitant]
     Indication: SCHIZOPHRENIA
     Route: 048
  7. URSO [Concomitant]
     Route: 048
  8. TENORMIN [Concomitant]
     Route: 048
  9. BLOPRESS [Concomitant]
     Route: 048
  10. DIOVAN [Concomitant]
     Route: 048
  11. DEPAKENE [Concomitant]
     Route: 048
  12. CALUNIATIN [Concomitant]
     Route: 048
  13. TRYTHMEN [Concomitant]
     Route: 048

REACTIONS (1)
  - Death [Fatal]
